FAERS Safety Report 9362066 (Version 3)
Quarter: 2013Q3

REPORT INFORMATION
  Report Type: Spontaneous
  Country: US (occurrence: US)
  Receive Date: 20130621
  Receipt Date: 20130910
  Transmission Date: 20140515
  Serious: Yes (Hospitalization, Other)
  Sender: FDA-Public Use
  Company Number: US-MERCK-1306USA009753

PATIENT
  Age: 22 Year
  Sex: Male
  Weight: 62.59 kg

DRUGS (2)
  1. SAPHRIS [Suspect]
     Indication: BIPOLAR DISORDER
     Dosage: 10 MG, BID
     Route: 060
     Dates: end: 20130528
  2. SEROQUEL [Concomitant]
     Dosage: DOSADE FORM: XR, TOTAL DAILY DOSE: 600MG
     Route: 048
     Dates: start: 20130422, end: 20130614

REACTIONS (8)
  - Hypersensitivity [Unknown]
  - Muscle rigidity [Recovered/Resolved]
  - Muscle disorder [Recovered/Resolved]
  - Local swelling [Unknown]
  - Muscle swelling [Unknown]
  - Local swelling [Unknown]
  - Posture abnormal [Unknown]
  - Tension [Unknown]
